FAERS Safety Report 17688334 (Version 1)
Quarter: 2020Q2

REPORT INFORMATION
  Report Type: Spontaneous
  Country: US (occurrence: US)
  Receive Date: 20200420
  Receipt Date: 20200420
  Transmission Date: 20200714
  Serious: No
  Sender: FDA-Public Use
  Company Number: None

PATIENT
  Age: 72 Year
  Sex: Male
  Weight: 112.05 kg

DRUGS (14)
  1. FLUTICASONE 50MCG/ACT [Concomitant]
  2. OMEPRAZOLE 20MG [Concomitant]
     Active Substance: OMEPRAZOLE
  3. DICYCLOMINE [Concomitant]
     Active Substance: DICYCLOMINE HYDROCHLORIDE
  4. MELOXICAM 15MG [Concomitant]
     Active Substance: MELOXICAM
  5. ATORVASTATIN 10MG [Concomitant]
     Active Substance: ATORVASTATIN
  6. LANTUS SOLOSTAR [Concomitant]
     Active Substance: INSULIN GLARGINE
  7. BUPROPION ER 300MG [Concomitant]
  8. LAMOTRIGINE 150MG [Concomitant]
     Active Substance: LAMOTRIGINE
  9. CYCLOBENZAPRINE 10MG [Concomitant]
     Active Substance: CYCLOBENZAPRINE
  10. OLANZAPINE 5MG [Concomitant]
     Active Substance: OLANZAPINE
  11. TAMSULOSIN 0.4MG [Concomitant]
     Active Substance: TAMSULOSIN
  12. FLUOXETINE [Concomitant]
     Active Substance: FLUOXETINE HYDROCHLORIDE
  13. CAPECITABINE. [Suspect]
     Active Substance: CAPECITABINE
     Indication: PANCREATIC CARCINOMA
     Route: 048
     Dates: start: 20200309, end: 20200420
  14. LYRICA [Concomitant]
     Active Substance: PREGABALIN

REACTIONS (1)
  - Balance disorder [None]

NARRATIVE: CASE EVENT DATE: 20200420
